FAERS Safety Report 7063011-6 (Version None)
Quarter: 2010Q4

REPORT INFORMATION
  Report Type: 
  Country: None (occurrence: None)
  Receive Date: 20101026
  Receipt Date: 20100319
  Transmission Date: 20110411
  Serious: Yes (Other)
  Sender: FDA-Public Use
  Company Number: US-PFIZER INC-2010031418

PATIENT
  Sex: Female
  Weight: 94.3 kg

DRUGS (4)
  1. LIPITOR [Suspect]
     Indication: BLOOD CHOLESTEROL INCREASED
     Dosage: 10 MG, 1X/DAY AT NIGHT
     Route: 048
     Dates: start: 20100305, end: 20100305
  2. LIPITOR [Suspect]
     Dosage: 5 MG, UNK
     Dates: start: 20100306, end: 20100306
  3. ATENOLOL [Concomitant]
     Indication: HYPERTENSION
     Dosage: UNK
  4. OMEPRAZOLE [Concomitant]
     Indication: GASTROOESOPHAGEAL REFLUX DISEASE
     Dosage: UNK

REACTIONS (2)
  - MUSCLE SPASMS [None]
  - MYALGIA [None]
